FAERS Safety Report 4279663-X (Version None)
Quarter: 2004Q1

REPORT INFORMATION
  Report Type: 
  Country: None (occurrence: None)
  Receive Date: 20040127
  Receipt Date: 20040127
  Transmission Date: 20041129
  Serious: Yes (Hospitalization)
  Sender: FDA-Public Use
  Company Number: None

PATIENT
  Age: 77 Year
  Sex: Female

DRUGS (1)
  1. LISINOPRIL [Suspect]
     Indication: HYPERTENSION
     Dosage: 20 MG DAILY ORAL
     Route: 048
     Dates: start: 20031201, end: 20031222

REACTIONS (3)
  - DYSPNOEA [None]
  - SWOLLEN TONGUE [None]
  - THROAT TIGHTNESS [None]
